FAERS Safety Report 14525626 (Version 3)
Quarter: 2018Q1

REPORT INFORMATION
  Report Type: Spontaneous
  Country: BR (occurrence: BR)
  Receive Date: 20180213
  Receipt Date: 20180312
  Transmission Date: 20180509
  Serious: Yes (Other)
  Sender: FDA-Public Use
  Company Number: BR-PFIZER INC-2018060450

PATIENT
  Age: 38 Year
  Sex: Male

DRUGS (2)
  1. FRONTAL [Suspect]
     Active Substance: ALPRAZOLAM
     Indication: ANXIETY
  2. FRONTAL [Suspect]
     Active Substance: ALPRAZOLAM
     Indication: PANIC DISORDER
     Dosage: UNK, 3X/DAY

REACTIONS (8)
  - Anal fissure [Unknown]
  - Dental fistula [Recovered/Resolved]
  - Intentional product misuse [Not Recovered/Not Resolved]
  - Intraocular pressure increased [Recovered/Resolved]
  - Eye infection viral [Recovered/Resolved]
  - Drug ineffective [Unknown]
  - Cataract [Recovered/Resolved]
  - Irritable bowel syndrome [Recovered/Resolved]

NARRATIVE: CASE EVENT DATE: 2009
